FAERS Safety Report 23706732 (Version 1)
Quarter: 2024Q2

REPORT INFORMATION
  Report Type: Spontaneous
  Country: US (occurrence: None)
  Receive Date: 20240404
  Receipt Date: 20240404
  Transmission Date: 20240716
  Serious: No
  Sender: FDA-Public Use
  Company Number: None

PATIENT
  Age: 26 Year
  Sex: Female
  Weight: 65.25 kg

DRUGS (3)
  1. TIRZEPATIDE [Suspect]
     Active Substance: TIRZEPATIDE
     Indication: Obesity
     Dates: start: 20240126
  2. Zoloft 50 mg (4 years) [Concomitant]
  3. Birth control (4 years) [Concomitant]

REACTIONS (4)
  - Suicidal ideation [None]
  - Depression [None]
  - Therapy change [None]
  - Vomiting [None]

NARRATIVE: CASE EVENT DATE: 20240403
